FAERS Safety Report 23917808 (Version 1)
Quarter: 2024Q2

REPORT INFORMATION
  Report Type: Spontaneous
  Country: US (occurrence: US)
  Receive Date: 20240530
  Receipt Date: 20240530
  Transmission Date: 20240716
  Serious: Yes (Other)
  Sender: FDA-Public Use
  Company Number: US-SPECGX-T202401177

PATIENT
  Sex: Female
  Weight: 49 kg

DRUGS (1)
  1. HYDROMORPHONE [Suspect]
     Active Substance: HYDROMORPHONE
     Indication: Pain
     Dosage: 4 MILLIGRAM, 5 TIMES A DAY
     Route: 065

REACTIONS (4)
  - Surgery [Unknown]
  - Orthopaedic procedure [Unknown]
  - Back disorder [Unknown]
  - Drug ineffective [Unknown]
